FAERS Safety Report 8204889-X (Version None)
Quarter: 2012Q1

REPORT INFORMATION
  Report Type: 
  Country: None (occurrence: None)
  Receive Date: 20120313
  Receipt Date: 20120308
  Transmission Date: 20120608
  Serious: No
  Sender: FDA-Public Use
  Company Number: US-TEVA-327257USA

PATIENT
  Sex: Female
  Weight: 70.37 kg

DRUGS (4)
  1. FEXOFENADINE [Concomitant]
     Indication: HYPERSENSITIVITY
  2. BUDESONIDE [Concomitant]
     Indication: HYPERSENSITIVITY
     Route: 045
  3. SERTRALINE HYDROCHLORIDE [Concomitant]
     Indication: DEPRESSION
     Route: 048
  4. COPAXONE [Suspect]
     Indication: MULTIPLE SCLEROSIS
     Dosage: 20 MILLIGRAM;
     Route: 058
     Dates: start: 20110801

REACTIONS (1)
  - RASH GENERALISED [None]
